FAERS Safety Report 24731234 (Version 1)
Quarter: 2024Q4

REPORT INFORMATION
  Report Type: Spontaneous
  Country: US (occurrence: US)
  Receive Date: 20241213
  Receipt Date: 20241213
  Transmission Date: 20250114
  Serious: Yes (Other)
  Sender: BAYER HEALTHCARE LLC
  Company Number: US-BAYER-2024A171100

PATIENT
  Age: 72 Year
  Sex: Female

DRUGS (3)
  1. ALKA-SELTZER GOLD [Suspect]
     Active Substance: ANHYDROUS CITRIC ACID\POTASSIUM BICARBONATE\SODIUM BICARBONATE
     Indication: Atrial fibrillation
     Dosage: 4 DF, QD
     Route: 048
     Dates: start: 1984
  2. ALKA-SELTZER GOLD [Suspect]
     Active Substance: ANHYDROUS CITRIC ACID\POTASSIUM BICARBONATE\SODIUM BICARBONATE
     Indication: Anaphylactic shock
     Dosage: 1 DF, QD
  3. ALKA-SELTZER GOLD [Suspect]
     Active Substance: ANHYDROUS CITRIC ACID\POTASSIUM BICARBONATE\SODIUM BICARBONATE
     Indication: Prophylaxis

REACTIONS (2)
  - Drug dependence [Not Recovered/Not Resolved]
  - Drug effective for unapproved indication [None]

NARRATIVE: CASE EVENT DATE: 20170101
